FAERS Safety Report 23521760 (Version 1)
Quarter: 2024Q1

REPORT INFORMATION
  Report Type: Spontaneous
  Country: US (occurrence: US)
  Receive Date: 20240214
  Receipt Date: 20240214
  Transmission Date: 20240409
  Serious: Yes (Other)
  Sender: FDA-Public Use
  Company Number: US-CHEPLA-2024001115

PATIENT
  Sex: Male

DRUGS (1)
  1. OLANZAPINE PAMOATE [Suspect]
     Active Substance: OLANZAPINE PAMOATE
     Dosage: RECEIVING 300MG INJECTIONS BECAUSE OF THE SHORTAGE OF THE 405MG

REACTIONS (3)
  - Mental disorder [Unknown]
  - Product availability issue [Unknown]
  - Underdose [Unknown]
